FAERS Safety Report 7287232-2 (Version None)
Quarter: 2011Q1

REPORT INFORMATION
  Report Type: 
  Country: None (occurrence: None)
  Receive Date: 20110211
  Receipt Date: 20101227
  Transmission Date: 20110831
  Serious: Yes (Hospitalization, Other)
  Sender: FDA-Public Use
  Company Number: US-BAYER-200943252NA

PATIENT
  Sex: Female
  Weight: 59 kg

DRUGS (12)
  1. GLYCOLAX [Concomitant]
  2. SERTRALINE [Concomitant]
  3. PROMETHAZINE [Concomitant]
  4. YASMIN [Suspect]
     Indication: CONTRACEPTION
     Dosage: DISCREPANCIES WERE NOTED : MEDICAL RECORDS STATES ^NOT ON ESTROGEN PILL^ AT TIME OF EVENT
     Route: 048
     Dates: start: 20050801, end: 20060801
  5. YAZ [Suspect]
     Indication: CONTRACEPTION
     Dosage: DISCREPANCIES WERE NOTED : MEDICAL RECORDS STATES ^NOT ON ESTROGEN PILL^ AT TIME OF EVENT
     Route: 048
     Dates: start: 20050101, end: 20060101
  6. ASPIRIN [Concomitant]
     Dosage: 81 MG, QD
  7. HYDROCODONE BITARTRATE [Concomitant]
  8. LIPITOR [Concomitant]
  9. TEMAZEPAM [Concomitant]
  10. FOLIC ACID [Concomitant]
  11. PROTONIX [Concomitant]
     Indication: DYSPEPSIA
  12. ZOLPIDEM [Concomitant]

REACTIONS (16)
  - COGNITIVE DISORDER [None]
  - PULMONARY EMBOLISM [None]
  - GRAND MAL CONVULSION [None]
  - VOMITING [None]
  - VIITH NERVE PARALYSIS [None]
  - CEREBRAL ARTERY EMBOLISM [None]
  - ASTHENIA [None]
  - AMNESIA [None]
  - HEMICEPHALALGIA [None]
  - CONVULSION [None]
  - DYSARTHRIA [None]
  - ATELECTASIS [None]
  - CEREBRAL ARTERY THROMBOSIS [None]
  - CEREBRAL INFARCTION [None]
  - HEMIPARESIS [None]
  - SPEECH DISORDER [None]
